FAERS Safety Report 11218605 (Version 1)
Quarter: 2015Q2

REPORT INFORMATION
  Report Type: Spontaneous
  Country: NO (occurrence: NO)
  Receive Date: 20150625
  Receipt Date: 20150625
  Transmission Date: 20150821
  Serious: Yes (Death, Hospitalization)
  Sender: FDA-Public Use
  Company Number: PHHY2015NO035325

PATIENT
  Age: 43 Year
  Sex: Male
  Weight: 94 kg

DRUGS (29)
  1. APREPITANT. [Suspect]
     Active Substance: APREPITANT
     Dosage: DOSAGE FORM: UNSPECIFIED, DAY  2 AND DAY 3 (OF SECOND TRABECTEDIN CYCLE)
     Route: 065
  2. ESOMEPRAZOLE [Suspect]
     Active Substance: ESOMEPRAZOLE
     Indication: PRODUCT USED FOR UNKNOWN INDICATION
     Dosage: 40 MG, QD
     Route: 065
  3. YONDELIS [Suspect]
     Active Substance: TRABECTEDIN
     Dosage: DOSAGE FORM: LYOPHILIZED POWDER
     Route: 042
     Dates: start: 20150205, end: 20150206
  4. YONDELIS [Suspect]
     Active Substance: TRABECTEDIN
     Dosage: 1.5 MG/M2, TIW (3.2 MG) EVERY THREE WEEKS
     Route: 042
     Dates: start: 20150205, end: 20150206
  5. ONDANSETRON [Concomitant]
     Active Substance: ONDANSETRON
     Indication: NAUSEA
     Dosage: 8 MG, BID, 3 DAYS AFTER TRABECTEDIN INFUSION)
     Route: 065
     Dates: start: 20150115
  6. FURIX [Concomitant]
     Active Substance: FUROSEMIDE
     Indication: ACUTE KIDNEY INJURY
     Dosage: 10 MG, QID
     Route: 040
     Dates: start: 20150213
  7. AFIPRAN [Concomitant]
     Indication: NAUSEA
     Dosage: 10 MG, TID
     Route: 065
     Dates: start: 20150115
  8. OXYCONTIN [Concomitant]
     Active Substance: OXYCODONE HYDROCHLORIDE
     Route: 048
     Dates: start: 20150219, end: 20150222
  9. DUPHALAC [Concomitant]
     Active Substance: LACTULOSE
     Indication: CONSTIPATION
     Dosage: 15 ML, BID
     Route: 048
     Dates: start: 20150115
  10. ESOMEPRAZOLE [Suspect]
     Active Substance: ESOMEPRAZOLE
     Dosage: DOSAGE FORM: UNSPECIFIED
     Route: 065
  11. PEGFILGRASTIM [Concomitant]
     Active Substance: PEGFILGRASTIM
     Dosage: DOSAGE FORM: UNSPECIFIED, 24-48 HOURS AFTER TRABECTEDIN INFUSION
     Route: 065
  12. AZITHROMYCIN [Concomitant]
     Active Substance: AZITHROMYCIN ANHYDROUS
     Dosage: DOSAGE FORM: UNSPECIFIED
     Route: 048
     Dates: start: 20150218, end: 20150222
  13. AFIPRAN [Concomitant]
     Dosage: DOSAGE FORM: UNSPECIFIED
     Dates: start: 20150115
  14. ONDANSETRON [Concomitant]
     Active Substance: ONDANSETRON
     Dosage: DOSAGE FORM: UNSPECIFIED, 3 DAYS AFTER TRABECTEDIN INFUSION
     Route: 065
     Dates: start: 20150115
  15. DEXAMETHASONE. [Concomitant]
     Active Substance: DEXAMETHASONE
     Indication: PREMEDICATION
     Dosage: 20 MG, UNK
     Route: 042
  16. LAXOBERAL [Concomitant]
     Active Substance: SODIUM PICOSULFATE
     Indication: CONSTIPATION
     Dosage: 10 DF, UNK
     Route: 048
     Dates: start: 20150115
  17. MEROPENEM. [Concomitant]
     Active Substance: MEROPENEM
     Dosage: DOSAGE FORM: UNSPECIFIED
     Route: 040
     Dates: start: 20150218, end: 20150222
  18. APREPITANT. [Suspect]
     Active Substance: APREPITANT
     Dosage: DOSAGE FORM: UNSPECIFIED, DAY 1 OF TRABECTEDIN CYCLE
     Route: 065
     Dates: start: 20150115
  19. YONDELIS [Suspect]
     Active Substance: TRABECTEDIN
     Indication: SYNOVIAL SARCOMA
     Dosage: 1.5 MG/M2, TIW (3.2 MG) EVERY THREE WEEKS
     Route: 042
     Dates: start: 20150115
  20. NEULASTA [Concomitant]
     Active Substance: PEGFILGRASTIM
     Indication: NEUTROPENIA
     Dosage: 6 MG, QD
     Route: 058
     Dates: start: 20150115
  21. DUPHALAC [Concomitant]
     Active Substance: LACTULOSE
     Dosage: DOSAGE FORM: UNSPECIFIED
     Route: 048
     Dates: start: 20150115
  22. PEGFILGRASTIM [Concomitant]
     Active Substance: PEGFILGRASTIM
     Indication: PRODUCT USED FOR UNKNOWN INDICATION
     Dosage: 6 MG, UNK (UNSPECIFIED, 24-48 HOURS AFTER TRABECTEDIN INFUSION)
     Route: 065
  23. FURIX [Concomitant]
     Active Substance: FUROSEMIDE
     Dosage: DOSAGE FORM: UNSPECIFIED
     Route: 040
     Dates: start: 20150213, end: 20150222
  24. AZITHROMYCIN [Concomitant]
     Active Substance: AZITHROMYCIN ANHYDROUS
     Indication: INFECTION
     Dosage: 500 MG, QD
     Route: 048
     Dates: start: 20150218
  25. OXYCONTIN [Concomitant]
     Active Substance: OXYCODONE HYDROCHLORIDE
     Indication: PAIN
     Dosage: 10 MG, BID
     Route: 048
     Dates: start: 20150219
  26. APREPITANT. [Suspect]
     Active Substance: APREPITANT
     Indication: PRODUCT USED FOR UNKNOWN INDICATION
     Dosage: 125 MG, UNK (ON DAY 1 OF TRABECTEDIN CYCLE)
     Route: 065
  27. APREPITANT. [Suspect]
     Active Substance: APREPITANT
     Dosage: 80 MG, UNK (ON DAY 2 AND DAY 3 (OF SECOND TRABECTEDIN CYCLE)
     Route: 065
  28. YONDELIS [Suspect]
     Active Substance: TRABECTEDIN
     Dosage: DOSAGE FORM: LYOPHILIZED POWDER
     Route: 042
     Dates: start: 20150115
  29. MEROPENEM. [Concomitant]
     Active Substance: MEROPENEM
     Indication: INFECTION
     Dosage: 500 MG, TID
     Route: 040
     Dates: start: 20150218

REACTIONS (7)
  - Bone marrow failure [Not Recovered/Not Resolved]
  - Hepatic enzyme increased [Not Recovered/Not Resolved]
  - Cholecystitis [Unknown]
  - Acute kidney injury [Fatal]
  - Lung infiltration [Unknown]
  - Rhabdomyolysis [Fatal]
  - Pulmonary congestion [Unknown]

NARRATIVE: CASE EVENT DATE: 201502
